FAERS Safety Report 22853078 (Version 3)
Quarter: 2023Q4

REPORT INFORMATION
  Report Type: Spontaneous
  Country: US (occurrence: US)
  Receive Date: 20230823
  Receipt Date: 20231004
  Transmission Date: 20240109
  Serious: No
  Sender: FDA-Public Use
  Company Number: US-BIOVITRUM-2023-US-014088

PATIENT
  Age: 37 Year
  Sex: Male

DRUGS (2)
  1. KINERET [Suspect]
     Active Substance: ANAKINRA
     Indication: Pyrexia
     Dosage: 100MG, DAILY
     Route: 058
     Dates: start: 20230808
  2. KINERET [Suspect]
     Active Substance: ANAKINRA
     Dosage: 100MG, DAILY
     Route: 058
     Dates: start: 20230809

REACTIONS (14)
  - Off label use [Not Recovered/Not Resolved]
  - Product dose omission issue [Unknown]
  - Rash [Unknown]
  - Pruritus [Unknown]
  - Injection site reaction [Unknown]
  - Injection site haemorrhage [Unknown]
  - Rash pruritic [Unknown]
  - Injection site erythema [Unknown]
  - Injection site rash [Unknown]
  - Injection site pruritus [Unknown]
  - Erythema [Unknown]
  - Contusion [Unknown]
  - Skin induration [Unknown]
  - Injection site hypersensitivity [Unknown]

NARRATIVE: CASE EVENT DATE: 20230808
